FAERS Safety Report 10925089 (Version 1)
Quarter: 2015Q1

REPORT INFORMATION
  Report Type: Spontaneous
  Country: US (occurrence: None)
  Receive Date: 20150316
  Receipt Date: 20150316
  Transmission Date: 20150721
  Serious: Yes (Disabling)
  Sender: FDA-Public Use
  Company Number: None

PATIENT
  Age: 68 Year
  Sex: Female

DRUGS (16)
  1. ZOMETA [Suspect]
     Active Substance: ZOLEDRONIC ACID
     Indication: METASTASES TO BONE
     Dosage: 4 MG - 100 ML ONE INFUSION EVERY INTO A VEIN
     Route: 042
     Dates: start: 20150303
  2. FLAXSEED [Concomitant]
     Active Substance: FLAX SEED
  3. ZOMETA [Suspect]
     Active Substance: ZOLEDRONIC ACID
     Indication: BREAST CANCER
     Dosage: 4 MG - 100 ML ONE INFUSION EVERY INTO A VEIN
     Route: 042
     Dates: start: 20150303
  4. MONTELUKAST [Concomitant]
     Active Substance: MONTELUKAST SODIUM
  5. K GLUCONATE [Concomitant]
     Active Substance: POTASSIUM GLUCONATE
  6. VITAMIN D3 [Concomitant]
     Active Substance: CHOLECALCIFEROL
  7. LORATIDINE [Concomitant]
     Active Substance: LORATADINE
  8. VIT B100 COMPLEX [Concomitant]
  9. CHLORTHALIDONE. [Concomitant]
     Active Substance: CHLORTHALIDONE
  10. VITAMIN C [Concomitant]
     Active Substance: ASCORBIC ACID
  11. COQ10 [Concomitant]
     Active Substance: UBIDECARENONE
  12. LOVASTATIN. [Concomitant]
     Active Substance: LOVASTATIN
  13. MULTIVITAMIN [Concomitant]
     Active Substance: VITAMINS
  14. ZOMETA [Suspect]
     Active Substance: ZOLEDRONIC ACID
     Indication: PROPHYLAXIS
     Dosage: 4 MG - 100 ML ONE INFUSION EVERY INTO A VEIN
     Route: 042
     Dates: start: 20150303
  15. MG,CA [Concomitant]
  16. ATENOLOL. [Concomitant]
     Active Substance: ATENOLOL

REACTIONS (2)
  - Pain in extremity [None]
  - Musculoskeletal chest pain [None]

NARRATIVE: CASE EVENT DATE: 20150310
